APPROVED DRUG PRODUCT: FUROSEMIDE
Active Ingredient: FUROSEMIDE
Strength: 40MG
Dosage Form/Route: TABLET;ORAL
Application: N018753 | Product #002
Applicant: INTERNATIONAL MEDICATION SYSTEMS LTD
Approved: Feb 28, 1984 | RLD: No | RS: No | Type: DISCN